FAERS Safety Report 11984951 (Version 1)
Quarter: 2016Q1

REPORT INFORMATION
  Report Type: Spontaneous
  Country: FR (occurrence: FR)
  Receive Date: 20160201
  Receipt Date: 20160201
  Transmission Date: 20160526
  Serious: Yes (Disabling, Congenital Anomaly, Other)
  Sender: FDA-Public Use
  Company Number: FR-ABBVIE-16P-056-1550572-00

PATIENT
  Sex: Male

DRUGS (1)
  1. DEPAKINE CHRONO [Suspect]
     Active Substance: VALPROATE SODIUM
     Indication: MATERNAL EXPOSURE TIMING UNSPECIFIED
     Route: 064

REACTIONS (9)
  - Dysmorphism [Unknown]
  - Mitral valve prolapse [Unknown]
  - Fine motor delay [Unknown]
  - Speech disorder developmental [Unknown]
  - Ear malformation [Unknown]
  - Foetal exposure during pregnancy [Unknown]
  - Disturbance in attention [Unknown]
  - Foetal anticonvulsant syndrome [Unknown]
  - Epilepsy [Unknown]

NARRATIVE: CASE EVENT DATE: 19980609
